FAERS Safety Report 6097070-4 (Version None)
Quarter: 2009Q1

REPORT INFORMATION
  Report Type: 
  Country: None (occurrence: None)
  Receive Date: 20090227
  Receipt Date: 20090216
  Transmission Date: 20090719
  Serious: Yes (Hospitalization)
  Sender: FDA-Public Use
  Company Number: SE-PFIZER INC-2009172474

PATIENT

DRUGS (3)
  1. SOMATROPIN [Suspect]
     Indication: HYPOPITUITARISM
     Dosage: 0.3 MG, 1X/DAY
     Dates: start: 19951024
  2. TESTOVIRON-DEPOT [Concomitant]
     Dosage: 250 MG, MONTHLY
     Route: 030
     Dates: start: 19940301
  3. CORTISONE [Concomitant]
     Dosage: 12.5 MG, 2X/DAY
     Route: 048
     Dates: start: 19940101

REACTIONS (1)
  - PITUITARY TUMOUR BENIGN [None]
